FAERS Safety Report 10677698 (Version 2)
Quarter: 2014Q4

REPORT INFORMATION
  Report Type: Spontaneous
  Country: JP (occurrence: JP)
  Receive Date: 20141229
  Receipt Date: 20141229
  Transmission Date: 20150529
  Serious: Yes (Life-Threatening, Hospitalization, Disabling, Other)
  Sender: FDA-Public Use
  Company Number: JP-ROCHE-1464035

PATIENT
  Age: 59 Year
  Sex: Female
  Weight: 43 kg

DRUGS (4)
  1. HIRUDOID OINTMENT [Concomitant]
     Indication: PROPHYLAXIS
     Dosage: DOSAGE IS UNCERTAIN.
     Route: 003
     Dates: start: 20140814, end: 20140903
  2. XELODA [Suspect]
     Active Substance: CAPECITABINE
     Indication: ADJUVANT THERAPY
     Dosage: 2 WEEKS ADMINISTERATION FOLLOWED BY 1 WEEK REST
     Route: 048
     Dates: start: 20140724, end: 20140806
  3. XELODA [Suspect]
     Active Substance: CAPECITABINE
     Route: 048
     Dates: start: 20140814, end: 20140827
  4. FAMOTIDINE D [Concomitant]
     Active Substance: FAMOTIDINE
     Indication: CHRONIC GASTRITIS
     Dosage: DOSAGE IS UNCERTAIN.
     Route: 048
     Dates: start: 20140814, end: 20140903

REACTIONS (16)
  - Colitis ischaemic [Unknown]
  - Dysgeusia [Unknown]
  - Diarrhoea [Unknown]
  - Multi-organ failure [Recovering/Resolving]
  - Febrile neutropenia [Not Recovered/Not Resolved]
  - Neutrophil count decreased [Not Recovered/Not Resolved]
  - Stomatitis [Not Recovered/Not Resolved]
  - Disseminated intravascular coagulation [Unknown]
  - Pleural effusion [Unknown]
  - Renal impairment [Unknown]
  - Hepatic function abnormal [Unknown]
  - Hypoalbuminaemia [Unknown]
  - Pancytopenia [Not Recovered/Not Resolved]
  - Malnutrition [Not Recovered/Not Resolved]
  - Dehydration [Unknown]
  - Oedema [Unknown]

NARRATIVE: CASE EVENT DATE: 20140901
